FAERS Safety Report 16923222 (Version 2)
Quarter: 2019Q4

REPORT INFORMATION
  Report Type: Report from Study
  Country: None (occurrence: TR)
  Receive Date: 20191016
  Receipt Date: 20191104
  Transmission Date: 20200122
  Serious: Yes (Hospitalization)
  Sender: FDA-Public Use
  Company Number: TR-ABBVIE-19K-161-2965273-00

PATIENT
  Sex: Male
  Weight: 76 kg

DRUGS (1)
  1. DUODOPA [Suspect]
     Active Substance: CARBIDOPA\LEVODOPA
     Indication: PARKINSON^S DISEASE
     Dosage: MORNING DOSE (ML): 5.10 CONTINUOUS DOSE (ML): 5.10 EXTRA DOSE (ML): 1.50
     Route: 050
     Dates: start: 20181205

REACTIONS (2)
  - Overdose [Recovered/Resolved]
  - Delirium [Recovered/Resolved]
